FAERS Safety Report 9378059 (Version 1)
Quarter: 2013Q3

REPORT INFORMATION
  Report Type: Spontaneous
  Country: US (occurrence: US)
  Receive Date: 20130701
  Receipt Date: 20130701
  Transmission Date: 20140515
  Serious: Yes (Other)
  Sender: FDA-Public Use
  Company Number: US-ELI_LILLY_AND_COMPANY-US201305010035

PATIENT
  Age: 61 Year
  Sex: Male

DRUGS (1)
  1. AXIRON [Suspect]
     Indication: BLOOD TESTOSTERONE DECREASED
     Dosage: 60 MG, QD
     Dates: start: 20130328

REACTIONS (4)
  - Pituitary tumour [Unknown]
  - Weight decreased [Unknown]
  - Shoulder deformity [Unknown]
  - Muscle atrophy [Unknown]
